FAERS Safety Report 5152859-0 (Version None)
Quarter: 2006Q4

REPORT INFORMATION
  Report Type: 
  Country: None (occurrence: None)
  Receive Date: 20060918
  Receipt Date: 20051107
  Transmission Date: 20070319
  Serious: Yes (Hospitalization, Other)
  Sender: FDA-Public Use
  Company Number: PHEH2005US11875

PATIENT
  Age: 59 Year
  Sex: Female

DRUGS (14)
  1. FEMARA [Suspect]
     Indication: BREAST CANCER
     Dosage: 2.5 MG, QD, ORAL
     Route: 048
     Dates: start: 20050201
  2. FOSAMAX [Concomitant]
  3. PROSOM (ESTAZOLAM) [Concomitant]
  4. EFFEXOR [Concomitant]
  5. VISTARIL [Concomitant]
  6. RISPERDAL [Concomitant]
  7. ZOCOR [Concomitant]
  8. TRICOR [Concomitant]
  9. COGENTIN [Concomitant]
  10. CENTRUM (MINERALS NOS, VITAMINS NOS) [Concomitant]
  11. LITHIUM (LITHIUM) [Concomitant]
  12. ASPIRIN [Concomitant]
  13. ATENOLOL [Concomitant]
  14. COLACE (DOCUSATE SODIUM) [Concomitant]

REACTIONS (2)
  - DEEP VEIN THROMBOSIS [None]
  - LIMB DISCOMFORT [None]
